FAERS Safety Report 16751029 (Version 1)
Quarter: 2019Q3

REPORT INFORMATION
  Report Type: Spontaneous
  Country: IE (occurrence: IE)
  Receive Date: 20190828
  Receipt Date: 20190828
  Transmission Date: 20191005
  Serious: Yes (Other)
  Sender: FDA-Public Use
  Company Number: IE-REGENERON PHARMACEUTICALS, INC.-2019-49315

PATIENT

DRUGS (1)
  1. EYLEA [Suspect]
     Active Substance: AFLIBERCEPT
     Indication: MACULAR OEDEMA
     Dosage: 2 DOSES ADMINISTERED INTRAVITREAL INTO THE RIGHT EYE
     Route: 031
     Dates: start: 20190315, end: 20190412

REACTIONS (4)
  - Eye inflammation [Recovered/Resolved]
  - Pain [Recovered/Resolved]
  - Non-infectious endophthalmitis [Recovered/Resolved]
  - Visual impairment [Recovered/Resolved]

NARRATIVE: CASE EVENT DATE: 20190507
